FAERS Safety Report 5843467-4 (Version None)
Quarter: 2008Q3

REPORT INFORMATION
  Report Type: 
  Country: None (occurrence: None)
  Receive Date: 20080811
  Receipt Date: 20080731
  Transmission Date: 20090109
  Serious: Yes (Other)
  Sender: FDA-Public Use
  Company Number: 100#03#2008-03867

PATIENT
  Age: 62 Year
  Sex: Female

DRUGS (2)
  1. ALENDRONIC ACID (ALENDRONIC ACID) [Suspect]
     Indication: OSTEOPOROSIS
     Dosage: 70 MG ONCE WEEKLY (70 MG)  ORAL
     Route: 048
     Dates: start: 20080501
  2. CALCIUM AND VITAMIN D (CALCIUM LACTATE, CALCIUM PHOSPHATE, ERGOCALCIFE [Concomitant]

REACTIONS (2)
  - ALOPECIA [None]
  - ANXIETY [None]
